FAERS Safety Report 24671705 (Version 2)
Quarter: 2025Q1

REPORT INFORMATION
  Report Type: Spontaneous
  Country: US (occurrence: US)
  Receive Date: 20241127
  Receipt Date: 20250120
  Transmission Date: 20250409
  Serious: Yes (Hospitalization, Other)
  Sender: PFIZER
  Company Number: US-PFIZER INC-202400307112

PATIENT
  Age: 12 Year
  Sex: Female

DRUGS (1)
  1. GENOTROPIN [Suspect]
     Active Substance: SOMATROPIN
     Indication: Bone disorder
     Dosage: ON ADULT DOSE

REACTIONS (3)
  - Diabetes mellitus [Unknown]
  - Off label use [Unknown]
  - Off label use [Unknown]
